FAERS Safety Report 6652847-9 (Version None)
Quarter: 2010Q1

REPORT INFORMATION
  Report Type: 
  Country: None (occurrence: None)
  Receive Date: 20100326
  Receipt Date: 20100324
  Transmission Date: 20100710
  Serious: Yes (Death, Hospitalization)
  Sender: FDA-Public Use
  Company Number: GB-PERRIGO-10GB008084

PATIENT
  Age: 46 Year
  Sex: Male

DRUGS (12)
  1. NAPROXEN SODIUM 12063/0055 500 MG [Suspect]
     Indication: ANALGESIC THERAPY
     Dosage: 500 MG, BID
     Route: 065
  2. CARBOPLATIN [Suspect]
     Indication: METASTATIC MALIGNANT MELANOMA
     Dosage: TWO CYCLES
     Route: 065
  3. DEXAMETHASONE [Suspect]
     Indication: FATIGUE
     Dosage: 2 MG, QD
     Route: 065
  4. DEXAMETHASONE [Suspect]
     Dosage: 4 MG, QD
     Route: 065
  5. MOVICOL [Suspect]
     Indication: CONSTIPATION
     Dosage: SIX SACHETS PER DAY
     Route: 065
  6. DIAMORPHINE [Concomitant]
     Indication: ANALGESIC THERAPY
     Dosage: 100 MG CONTINOUS INFUSION
     Route: 058
  7. HYDROCORTISONE [Concomitant]
     Indication: DRUG USE FOR UNKNOWN INDICATION
     Dosage: UNK
     Route: 065
  8. KETAMINE [Concomitant]
     Indication: ANALGESIC THERAPY
     Dosage: UNK
     Route: 065
  9. MIDAZOLAM HCL [Concomitant]
     Indication: ANALGESIC THERAPY
     Dosage: 10 MG OVER 24 HOURS
     Route: 058
  10. MORPHINE SULFATE [Concomitant]
     Indication: ANALGESIC THERAPY
     Dosage: 90 MG, 12 HOURLY
     Route: 065
  11. WARFARIN SODIUM [Concomitant]
     Indication: PULMONARY EMBOLISM
     Dosage: UNK
     Route: 065
  12. WARFARIN SODIUM [Concomitant]
     Indication: PELVIC VENOUS THROMBOSIS

REACTIONS (14)
  - ABDOMINAL PAIN [None]
  - AGGRESSION [None]
  - AGITATION [None]
  - ASTHENIA [None]
  - BACK PAIN [None]
  - CONFUSIONAL STATE [None]
  - CONSTIPATION [None]
  - HYPERHIDROSIS [None]
  - HYPERKALAEMIA [None]
  - HYPONATRAEMIA [None]
  - HYPOTENSION [None]
  - LETHARGY [None]
  - TACHYCARDIA [None]
  - TUMOUR HAEMORRHAGE [None]
